FAERS Safety Report 10576863 (Version 1)
Quarter: 2014Q4

REPORT INFORMATION
  Report Type: Spontaneous
  Country: GB (occurrence: GB)
  Receive Date: 20141111
  Receipt Date: 20141111
  Transmission Date: 20150529
  Serious: Yes (Other)
  Sender: FDA-Public Use
  Company Number: GB-BRISTOL-MYERS SQUIBB COMPANY-21559612

PATIENT
  Age: 48 Year
  Sex: Male
  Weight: 81 kg

DRUGS (6)
  1. RAMIPRIL. [Concomitant]
     Active Substance: RAMIPRIL
     Dates: start: 20140610, end: 20140925
  2. DAPAGLIFLOZIN [Suspect]
     Active Substance: DAPAGLIFLOZIN
     Dates: start: 20140930
  3. SIMVASTATIN. [Concomitant]
     Active Substance: SIMVASTATIN
     Dates: start: 20140610, end: 20140925
  4. METFORMIN HCL [Concomitant]
     Active Substance: METFORMIN HYDROCHLORIDE
     Dates: start: 20140610, end: 20140925
  5. ASPIRIN. [Concomitant]
     Active Substance: ASPIRIN
     Dates: start: 20140610, end: 20140925
  6. BISOPROLOL [Concomitant]
     Active Substance: BISOPROLOL
     Dates: start: 20140610, end: 20140925

REACTIONS (3)
  - Hunger [Recovered/Resolved]
  - Malaise [Recovered/Resolved]
  - Flank pain [Recovered/Resolved]

NARRATIVE: CASE EVENT DATE: 20140930
